FAERS Safety Report 20362843 (Version 1)
Quarter: 2022Q1

REPORT INFORMATION
  Report Type: Report from Study
  Country: US (occurrence: US)
  Receive Date: 20220121
  Receipt Date: 20220121
  Transmission Date: 20220423
  Serious: Yes (Other)
  Sender: FDA-Public Use
  Company Number: US-JAZZ-2022-US-000367

PATIENT
  Sex: Female

DRUGS (10)
  1. XYREM [Suspect]
     Active Substance: SODIUM OXYBATE
     Indication: Narcolepsy
     Dosage: 2.25 GRAM, BID
     Route: 048
     Dates: start: 201908, end: 202004
  2. XYREM [Suspect]
     Active Substance: SODIUM OXYBATE
     Indication: Cataplexy
     Dosage: DOSE ADJUSTMENTS
     Route: 048
     Dates: start: 202004, end: 202108
  3. XYREM [Suspect]
     Active Substance: SODIUM OXYBATE
     Dosage: 4 GRAM, BID
     Dates: start: 202108
  4. OMEPRAZOLE [Concomitant]
     Active Substance: OMEPRAZOLE
     Indication: Product used for unknown indication
     Dosage: 0000
     Dates: start: 20200301
  5. TYLENOL EXTRA STRENGTH [Concomitant]
     Active Substance: ACETAMINOPHEN
     Indication: Product used for unknown indication
     Dosage: 0000
     Dates: start: 20200331
  6. FERROUS SULFATE [Concomitant]
     Active Substance: FERROUS SULFATE
     Indication: Product used for unknown indication
     Dosage: 0010
     Dates: start: 20200421
  7. CITRATE OF MAGNESIUM [Concomitant]
     Active Substance: MAGNESIUM CITRATE
     Indication: Product used for unknown indication
     Dosage: 0000
     Dates: start: 20200421
  8. DULCOLAX (BISACODYL) [Concomitant]
     Active Substance: BISACODYL
     Indication: Product used for unknown indication
     Dosage: 0000
     Dates: start: 20200421
  9. MIRALAX [Concomitant]
     Active Substance: POLYETHYLENE GLYCOL 3350
     Indication: Product used for unknown indication
     Dosage: 0000
     Dates: start: 20200421
  10. ZOFRAN [Concomitant]
     Active Substance: ONDANSETRON HYDROCHLORIDE
     Indication: Product used for unknown indication
     Dosage: 0000
     Dates: start: 20200421

REACTIONS (1)
  - Gastric ulcer [Recovering/Resolving]
